FAERS Safety Report 17540362 (Version 1)
Quarter: 2020Q1

REPORT INFORMATION
  Report Type: Spontaneous
  Country: GB (occurrence: GB)
  Receive Date: 20200313
  Receipt Date: 20200313
  Transmission Date: 20200409
  Serious: Yes (Hospitalization)
  Sender: FDA-Public Use
  Company Number: GB-PFIZER INC-2020108010

PATIENT
  Age: 39 Year
  Sex: Male

DRUGS (4)
  1. PROCARBAZINE [Concomitant]
     Active Substance: PROCARBAZINE
     Dosage: UNK
     Dates: start: 20191202, end: 20191207
  2. VINCRISTINE [Concomitant]
     Active Substance: VINCRISTINE
     Dosage: UNK
     Dates: start: 20191202, end: 20191202
  3. LOMUSTINE. [Concomitant]
     Active Substance: LOMUSTINE
     Dosage: UNK
     Dates: start: 20191202, end: 20191202
  4. LEVETIRACETAM. [Suspect]
     Active Substance: LEVETIRACETAM
     Indication: PARTIAL SEIZURES
     Dosage: UNK
     Dates: start: 20191107, end: 20200115

REACTIONS (1)
  - Hepatitis acute [Not Recovered/Not Resolved]

NARRATIVE: CASE EVENT DATE: 20200102
